FAERS Safety Report 8880442 (Version 1)
Quarter: 2012Q4

REPORT INFORMATION
  Report Type: 
  Country: BR (occurrence: BR)
  Receive Date: 20121031
  Receipt Date: 20121031
  Transmission Date: 20130627
  Serious: Yes (Hospitalization, Other)
  Sender: FDA-Public Use
  Company Number: BR-ASTRAZENECA-2012SE81569

PATIENT
  Age: 75 Year
  Sex: Female
  Weight: 69 kg

DRUGS (3)
  1. CRESTOR [Suspect]
     Indication: BLOOD CHOLESTEROL INCREASED
     Route: 048
     Dates: end: 2009
  2. BENERVA [Concomitant]
     Route: 048
     Dates: start: 2006
  3. ATENOLOL+CLORTALIDONE [Concomitant]
     Route: 048
     Dates: start: 2006

REACTIONS (3)
  - Fall [Recovered/Resolved]
  - Spinal fracture [Recovered/Resolved]
  - Bladder malposition acquired [Recovered/Resolved]
